FAERS Safety Report 12802844 (Version 1)
Quarter: 2016Q4

REPORT INFORMATION
  Report Type: Spontaneous
  Country: PE (occurrence: PE)
  Receive Date: 20161003
  Receipt Date: 20161003
  Transmission Date: 20170207
  Serious: Yes (Death, Other)
  Sender: FDA-Public Use
  Company Number: PE-GLAXOSMITHKLINE-PE2016GSK143078

PATIENT
  Age: 72 Year
  Sex: Female

DRUGS (1)
  1. SERETIDE [Suspect]
     Active Substance: FLUTICASONE PROPIONATE\SALMETEROL XINAFOATE
     Indication: PULMONARY FIBROSIS
     Dosage: 2 PUFF(S), 1D
     Route: 055
     Dates: start: 20160114

REACTIONS (1)
  - Pulmonary fibrosis [Fatal]

NARRATIVE: CASE EVENT DATE: 20160525
